FAERS Safety Report 20611767 (Version 1)
Quarter: 2022Q1

REPORT INFORMATION
  Report Type: Spontaneous
  Country: US (occurrence: US)
  Receive Date: 20220318
  Receipt Date: 20220318
  Transmission Date: 20220424
  Serious: Yes (Death, Other)
  Sender: FDA-Public Use
  Company Number: US-ALVOGEN-2022-ALVOGEN-118899

PATIENT
  Age: 56 Year
  Sex: Female

DRUGS (6)
  1. GABAPENTIN [Suspect]
     Active Substance: GABAPENTIN
     Indication: Drug abuse
  2. FENTANYL [Suspect]
     Active Substance: FENTANYL
     Indication: Drug abuse
  3. BUPROPION [Suspect]
     Active Substance: BUPROPION
     Indication: Drug abuse
  4. COCAINE [Suspect]
     Active Substance: COCAINE
     Indication: Drug abuse
  5. ARIPIPRAZOLE [Suspect]
     Active Substance: ARIPIPRAZOLE
     Indication: Drug abuse
  6. CLONAZEPAM [Suspect]
     Active Substance: CLONAZEPAM
     Indication: Drug abuse

REACTIONS (1)
  - Drug abuse [Fatal]
